FAERS Safety Report 12893342 (Version 1)
Quarter: 2016Q4

REPORT INFORMATION
  Report Type: Spontaneous
  Country: US (occurrence: US)
  Receive Date: 20161027
  Receipt Date: 20161027
  Transmission Date: 20170207
  Serious: No
  Sender: FDA-Public Use
  Company Number: None

PATIENT
  Age: 52 Year
  Sex: Male

DRUGS (1)
  1. LANSOPRAZOLE 30MG CAPSULES MYLAN [Suspect]
     Active Substance: LANSOPRAZOLE
     Dates: start: 201608, end: 20161005

REACTIONS (3)
  - Product odour abnormal [None]
  - Dyspepsia [None]
  - Product quality issue [None]

NARRATIVE: CASE EVENT DATE: 20161010
